FAERS Safety Report 10914497 (Version 1)
Quarter: 2015Q1

REPORT INFORMATION
  Report Type: Spontaneous
  Country: US (occurrence: US)
  Receive Date: 20150313
  Receipt Date: 20150313
  Transmission Date: 20150721
  Serious: No
  Sender: FDA-Public Use
  Company Number: US-GLAXOSMITHKLINE-US2015025578

PATIENT
  Sex: Male

DRUGS (1)
  1. LAMOTRIGINE TABLET [Suspect]
     Active Substance: LAMOTRIGINE
     Indication: BIPOLAR DISORDER
     Dosage: UNK, U

REACTIONS (4)
  - Drug ineffective [Unknown]
  - Psychotic disorder [Unknown]
  - Mania [Unknown]
  - Medication residue present [Unknown]
